FAERS Safety Report 9944884 (Version 1)
Quarter: 2014Q1

REPORT INFORMATION
  Report Type: Report from Study
  Country: US (occurrence: US)
  Receive Date: 20140303
  Receipt Date: 20140303
  Transmission Date: 20141002
  Serious: No
  Sender: FDA-Public Use
  Company Number: US-ABBVIE-13P-163-1048859-00

PATIENT
  Age: 23 Year
  Sex: Male
  Weight: 74.91 kg

DRUGS (4)
  1. HUMIRA [Suspect]
     Indication: ANKYLOSING SPONDYLITIS
     Dates: start: 2011, end: 20130128
  2. MELOXICAM [Concomitant]
     Indication: ANKYLOSING SPONDYLITIS
  3. PREDNISONE [Concomitant]
     Indication: ANKYLOSING SPONDYLITIS
  4. CYMBALTA [Concomitant]
     Indication: ANXIETY

REACTIONS (4)
  - Pyrexia [Recovering/Resolving]
  - Nasopharyngitis [Recovering/Resolving]
  - Sinusitis [Recovering/Resolving]
  - Streptococcal infection [Recovered/Resolved]
